FAERS Safety Report 12082449 (Version 3)
Quarter: 2016Q2

REPORT INFORMATION
  Report Type: Spontaneous
  Country: US (occurrence: US)
  Receive Date: 20160217
  Receipt Date: 20160511
  Transmission Date: 20160815
  Serious: No
  Sender: FDA-Public Use
  Company Number: US-CELGENEUS-USA-2016020364

PATIENT
  Age: 52 Year
  Sex: Male

DRUGS (3)
  1. CLOBEX [Concomitant]
     Active Substance: CLOBETASOL PROPIONATE
     Indication: PSORIASIS
     Dosage: WEEKEND, MAINTENANCE
     Route: 065
     Dates: start: 20141028
  2. VECTICAL [Concomitant]
     Active Substance: CALCITRIOL
     Indication: PSORIASIS
     Dosage: MAINTENANCE
     Route: 065
     Dates: start: 20141028
  3. OTEZLA [Suspect]
     Active Substance: APREMILAST
     Indication: PSORIASIS
     Dosage: TAPER UP PACKET
     Route: 048
     Dates: start: 20160120, end: 20160220

REACTIONS (7)
  - Nausea [Recovered/Resolved]
  - Agitation [Recovered/Resolved]
  - Abdominal discomfort [Recovered/Resolved]
  - Tinnitus [Recovered/Resolved]
  - Irritability [Recovered/Resolved]
  - Headache [Unknown]
  - Hangover [Recovered/Resolved]

NARRATIVE: CASE EVENT DATE: 201601
